FAERS Safety Report 20610452 (Version 9)
Quarter: 2022Q4

REPORT INFORMATION
  Report Type: Spontaneous
  Country: CA (occurrence: CA)
  Receive Date: 20220318
  Receipt Date: 20221227
  Transmission Date: 20230113
  Serious: Yes (Hospitalization, Other)
  Sender: FDA-Public Use
  Company Number: CA-CELLTRION INC.-2021CA018504

PATIENT

DRUGS (9)
  1. INFLECTRA [Suspect]
     Active Substance: INFLIXIMAB-DYYB
     Indication: Crohn^s disease
     Dosage: 5MG/KG WEEKS 0,2,6 THEN EVERY 8 WEEKS
     Route: 042
     Dates: start: 20211211
  2. INFLECTRA [Suspect]
     Active Substance: INFLIXIMAB-DYYB
     Dosage: 5 MG/KG Q WEEK 0, 2, 6
     Route: 042
     Dates: start: 20211211, end: 20220131
  3. INFLECTRA [Suspect]
     Active Substance: INFLIXIMAB-DYYB
     Dosage: 5MG/KG WEEKS 0,2,6 THEN EVERY 8 WEEKS
     Route: 042
     Dates: start: 20211229
  4. INFLECTRA [Suspect]
     Active Substance: INFLIXIMAB-DYYB
     Dosage: 5MG/KG(WEEK 6 DOSE)
     Route: 042
     Dates: start: 20220131, end: 20220131
  5. INFLECTRA [Suspect]
     Active Substance: INFLIXIMAB-DYYB
     Dosage: 10 MG/KG, EVERY 4 WEEKS
     Route: 042
     Dates: start: 20220308
  6. INFLECTRA [Suspect]
     Active Substance: INFLIXIMAB-DYYB
     Dosage: 10 MG/KG, EVERY 4 WEEKS
     Route: 042
     Dates: start: 20220406
  7. INFLECTRA [Suspect]
     Active Substance: INFLIXIMAB-DYYB
     Dosage: 10 MG/KG, EVERY 4 WEEKS
     Route: 042
     Dates: start: 20220503
  8. INFLECTRA [Suspect]
     Active Substance: INFLIXIMAB-DYYB
     Dosage: 10 MG/KG, EVERY 4 WEEKS
     Route: 042
     Dates: start: 20220531
  9. FRAGMIN [Concomitant]
     Active Substance: DALTEPARIN SODIUM
     Indication: Anticoagulant therapy
     Dosage: UNK

REACTIONS (21)
  - Infection [Not Recovered/Not Resolved]
  - Vein rupture [Unknown]
  - Portal vein thrombosis [Not Recovered/Not Resolved]
  - Splenic artery aneurysm [Not Recovered/Not Resolved]
  - Abdominal abscess [Not Recovered/Not Resolved]
  - Abscess [Recovering/Resolving]
  - Colectomy [Unknown]
  - Off label use [Unknown]
  - Diarrhoea [Unknown]
  - Gastrointestinal pain [Recovered/Resolved]
  - Feeling hot [Recovered/Resolved]
  - Body temperature increased [Recovered/Resolved]
  - Blood pressure diastolic increased [Unknown]
  - COVID-19 [Not Recovered/Not Resolved]
  - Cough [Recovered/Resolved]
  - Nasal congestion [Unknown]
  - Headache [Unknown]
  - Exposure to SARS-CoV-2 [Unknown]
  - Faecal calprotectin increased [Unknown]
  - Poor venous access [Unknown]
  - Drug level below therapeutic [Not Recovered/Not Resolved]

NARRATIVE: CASE EVENT DATE: 20211211
